FAERS Safety Report 5620098-2 (Version None)
Quarter: 2008Q1

REPORT INFORMATION
  Report Type: 
  Country: None (occurrence: None)
  Receive Date: 20080208
  Receipt Date: 20080205
  Transmission Date: 20080703
  Serious: Yes (Life-Threatening, Other)
  Sender: FDA-Public Use
  Company Number: US-MERCK-0711USA02651

PATIENT
  Sex: Male
  Weight: 77 kg

DRUGS (7)
  1. JANUVIA [Suspect]
     Indication: DIABETES MELLITUS
     Route: 048
     Dates: end: 20070101
  2. JANUVIA [Suspect]
     Route: 048
     Dates: start: 20070101
  3. AMARYL [Concomitant]
     Route: 065
  4. GLUCOPHAGE [Concomitant]
     Route: 065
     Dates: end: 20070101
  5. GLUCOPHAGE [Concomitant]
     Route: 065
     Dates: start: 20070101
  6. GLUCOVANCE [Concomitant]
     Route: 048
  7. ACTOS [Concomitant]
     Route: 065

REACTIONS (1)
  - HYPOGLYCAEMIA [None]
